FAERS Safety Report 19017584 (Version 5)
Quarter: 2021Q3

REPORT INFORMATION
  Report Type: Spontaneous
  Country: US (occurrence: US)
  Receive Date: 20210317
  Receipt Date: 20210831
  Transmission Date: 20211014
  Serious: Yes (Death, Hospitalization, Other)
  Sender: FDA-Public Use
  Company Number: NVSC2021US054870

PATIENT
  Sex: Male

DRUGS (1)
  1. ZOFRAN [Suspect]
     Active Substance: ONDANSETRON HYDROCHLORIDE
     Indication: NAUSEA
     Dosage: UNK
     Route: 065

REACTIONS (12)
  - Dehydration [Unknown]
  - Decreased appetite [Unknown]
  - Cardiac dysfunction [Unknown]
  - Weight decreased [Unknown]
  - Constipation [Unknown]
  - Drug ineffective [Unknown]
  - Death [Fatal]
  - Electrolyte imbalance [Unknown]
  - Dyspnoea [Unknown]
  - Atrial fibrillation [Unknown]
  - Nausea [Unknown]
  - Abdominal pain [Unknown]

NARRATIVE: CASE EVENT DATE: 202102
